FAERS Safety Report 18718214 (Version 5)
Quarter: 2021Q1

REPORT INFORMATION
  Report Type: Report from Study
  Country: MY (occurrence: MY)
  Receive Date: 20210108
  Receipt Date: 20210303
  Transmission Date: 20210419
  Serious: Yes (Death, Other)
  Sender: FDA-Public Use
  Company Number: MY-PFIZER INC-2021009550

PATIENT
  Age: 17 Year
  Sex: Female
  Weight: 49 kg

DRUGS (2)
  1. IDARUBICIN HCL [Suspect]
     Active Substance: IDARUBICIN HYDROCHLORIDE
     Dosage: UNK
  2. CYTARABINE. [Suspect]
     Active Substance: CYTARABINE
     Dosage: UNK

REACTIONS (4)
  - Shock [Fatal]
  - Neutropenic sepsis [Fatal]
  - White blood cell count decreased [Unknown]
  - Multiple organ dysfunction syndrome [Fatal]
